FAERS Safety Report 17839522 (Version 1)
Quarter: 2020Q2

REPORT INFORMATION
  Report Type: Spontaneous
  Country: EE (occurrence: EE)
  Receive Date: 20200529
  Receipt Date: 20200529
  Transmission Date: 20200714
  Serious: Yes (Other)
  Sender: FDA-Public Use
  Company Number: NVSC2020EE067819

PATIENT
  Age: 30 Year
  Sex: Female

DRUGS (8)
  1. CYCLOSPORINE. [Suspect]
     Active Substance: CYCLOSPORINE
     Indication: RASH
     Dosage: 100 MG, 1D
     Route: 065
  2. MONTELUKAST [Suspect]
     Active Substance: MONTELUKAST SODIUM
     Indication: URTICARIA
  3. PREDNISOLONE. [Suspect]
     Active Substance: PREDNISOLONE
     Indication: RASH
     Dosage: 20 MG, QD
     Route: 048
  4. MONTELUKAST [Suspect]
     Active Substance: MONTELUKAST SODIUM
     Indication: RASH
     Dosage: 10 MG, QD
     Route: 065
  5. DESLORATADINE. [Suspect]
     Active Substance: DESLORATADINE
     Indication: RASH
     Dosage: 2 DF, QD
     Route: 048
  6. PARACETAMOL [Suspect]
     Active Substance: ACETAMINOPHEN
     Indication: ARTHRALGIA
     Dosage: UNK
     Route: 065
  7. RUPATADINE [Suspect]
     Active Substance: RUPATADINE
     Indication: URTICARIA
  8. RUPATADINE [Suspect]
     Active Substance: RUPATADINE
     Indication: RASH
     Dosage: 1 TABLET PER DAY
     Route: 065

REACTIONS (12)
  - Abortion spontaneous [Unknown]
  - Condition aggravated [Unknown]
  - Angioedema [Unknown]
  - Sensation of foreign body [Unknown]
  - Drug ineffective for unapproved indication [Unknown]
  - Vomiting [Unknown]
  - Abdominal pain [Unknown]
  - Rash macular [Unknown]
  - Rash [Unknown]
  - Blood immunoglobulin E increased [Unknown]
  - Drug ineffective [Unknown]
  - Urticaria [Unknown]
